FAERS Safety Report 8845199 (Version 1)
Quarter: 2012Q4

REPORT INFORMATION
  Report Type: 
  Country: US (occurrence: US)
  Receive Date: 20121017
  Receipt Date: 20121017
  Transmission Date: 20130627
  Serious: No
  Sender: FDA-Public Use
  Company Number: US-009507513-1210USA003276

PATIENT
  Age: 19 Year
  Sex: Male

DRUGS (1)
  1. PROPECIA [Suspect]
     Indication: HAIR GROWTH ABNORMAL
     Dosage: 1 mg, qd
     Route: 048
     Dates: start: 20120830

REACTIONS (2)
  - Semen analysis abnormal [Unknown]
  - Testicular disorder [Unknown]
